FAERS Safety Report 7813141-3 (Version None)
Quarter: 2011Q4

REPORT INFORMATION
  Report Type: 
  Country: None (occurrence: None)
  Receive Date: 20111013
  Receipt Date: 20110923
  Transmission Date: 20120403
  Serious: Yes (Death, Hospitalization)
  Sender: FDA-Public Use
  Company Number: DE-ROCHE-798598

PATIENT
  Sex: Female
  Weight: 67 kg

DRUGS (3)
  1. XELODA [Suspect]
     Indication: BREAST CANCER METASTATIC
     Dosage: LAST DOS EPRIOR TO SAE: 09 AUGUST 2011, FREQUENCY: D1/14/Q21
     Route: 048
     Dates: start: 20110621, end: 20110809
  2. AVASTIN [Suspect]
     Indication: BREAST CANCER METASTATIC
     Dosage: LAST DOSE PRIOR TO SAE: 16 AUGUST 2011
     Route: 042
     Dates: start: 20110621, end: 20110816
  3. PACLITAXEL [Suspect]
     Indication: BREAST CANCER METASTATIC
     Dosage: LAST DOSE PRIOR TO SAE: 16 AUGUST 2011, FREQUENCY: D1,8,15,Q21
     Route: 042
     Dates: start: 20110621, end: 20110816

REACTIONS (5)
  - SEPSIS [None]
  - PNEUMONIA PRIMARY ATYPICAL [None]
  - DUODENAL ULCER HAEMORRHAGE [None]
  - PNEUMONIA [None]
  - VENTRICULAR TACHYCARDIA [None]
